FAERS Safety Report 15345126 (Version 1)
Quarter: 2018Q3

REPORT INFORMATION
  Report Type: Spontaneous
  Country: GB (occurrence: GB)
  Receive Date: 20180903
  Receipt Date: 20180903
  Transmission Date: 20181010
  Serious: Yes (Death, Other)
  Sender: FDA-Public Use
  Company Number: PHHY2018GB084309

PATIENT
  Age: 37 Year
  Sex: Male

DRUGS (9)
  1. BACLOFEN SANDOZ [Suspect]
     Active Substance: BACLOFEN
     Dosage: 60 MG, QD
     Route: 065
  2. PHENYTOIN. [Suspect]
     Active Substance: PHENYTOIN
     Dosage: 300 MG, QD, NOCTE
     Route: 065
  3. ORPHENADRINE [Suspect]
     Active Substance: ORPHENADRINE
     Indication: PRODUCT USED FOR UNKNOWN INDICATION
     Dosage: 50 MG, TID
     Route: 065
  4. PHENYTOIN. [Suspect]
     Active Substance: PHENYTOIN
     Indication: PRODUCT USED FOR UNKNOWN INDICATION
     Dosage: 200 MG, QD
     Route: 065
  5. CHLORPROMAZINE. [Suspect]
     Active Substance: CHLORPROMAZINE
     Indication: PRODUCT USED FOR UNKNOWN INDICATION
     Dosage: 20 MG, BID
     Route: 065
  6. TRIMETHOPRIM. [Suspect]
     Active Substance: TRIMETHOPRIM
     Indication: PRODUCT USED FOR UNKNOWN INDICATION
     Dosage: 100 MG, QD, NOCTE
     Route: 065
  7. TEMAZEPAM. [Suspect]
     Active Substance: TEMAZEPAM
     Indication: PRODUCT USED FOR UNKNOWN INDICATION
     Dosage: 20 MG, QD
     Route: 065
  8. BACLOFEN SANDOZ [Suspect]
     Active Substance: BACLOFEN
     Indication: MUSCLE SPASMS
     Dosage: 20 MG, Q6H
     Route: 065
  9. BACLOFEN SANDOZ [Suspect]
     Active Substance: BACLOFEN
     Dosage: 20 MG, TID
     Route: 065
     Dates: start: 1975

REACTIONS (16)
  - Hallucination, olfactory [Unknown]
  - Confusional state [Unknown]
  - Movement disorder [Unknown]
  - Quadriplegia [Unknown]
  - Encephalopathy [Recovered/Resolved]
  - Depersonalisation/derealisation disorder [Unknown]
  - Hallucination [Recovered/Resolved]
  - Generalised tonic-clonic seizure [Fatal]
  - Mental disorder [Unknown]
  - Echolalia [Unknown]
  - Hallucinations, mixed [Recovered/Resolved]
  - Spinal artery thrombosis [Unknown]
  - Sepsis [Unknown]
  - Urinary tract infection [Unknown]
  - Echopraxia [Unknown]
  - Cerebral atrophy [Unknown]

NARRATIVE: CASE EVENT DATE: 1983
